FAERS Safety Report 5397612-8 (Version None)
Quarter: 2007Q3

REPORT INFORMATION
  Report Type: 
  Country: None (occurrence: None)
  Receive Date: 20070723
  Receipt Date: 20070723
  Transmission Date: 20080115
  Serious: Yes (Other)
  Sender: FDA-Public Use
  Company Number: None

PATIENT
  Age: 4 Year
  Sex: Female
  Weight: 16.3295 kg

DRUGS (1)
  1. ZOSYN [Suspect]
     Indication: APPENDICITIS
     Dosage: 1.7GM Q8H IV BOLUS
     Route: 040
     Dates: start: 20070613, end: 20070706

REACTIONS (1)
  - NEUTROPHIL COUNT DECREASED [None]
